FAERS Safety Report 20827939 (Version 1)
Quarter: 2022Q2

REPORT INFORMATION
  Report Type: Spontaneous
  Country: US (occurrence: None)
  Receive Date: 20220513
  Receipt Date: 20220513
  Transmission Date: 20220720
  Serious: Yes (Disabling)
  Sender: FDA-Public Use
  Company Number: None

PATIENT
  Age: 40 Year
  Sex: Female
  Weight: 47.25 kg

DRUGS (3)
  1. DEPO-PROVERA [Suspect]
     Active Substance: MEDROXYPROGESTERONE ACETATE
     Indication: Contraception
     Dosage: OTHER FREQUENCY : ONCE EVERY 3MNTHS;?
     Route: 030
  2. IBUPROFEN [Concomitant]
     Active Substance: IBUPROFEN
  3. VITAMINS [Concomitant]
     Active Substance: VITAMINS

REACTIONS (12)
  - Osteopenia [None]
  - Migraine [None]
  - Back pain [None]
  - Muscle spasms [None]
  - Dysmenorrhoea [None]
  - Narcolepsy [None]
  - Headache [None]
  - Dysstasia [None]
  - Sitting disability [None]
  - Dizziness [None]
  - Memory impairment [None]
  - Neurotransmitter level altered [None]

NARRATIVE: CASE EVENT DATE: 20070101
